FAERS Safety Report 19014317 (Version 1)
Quarter: 2021Q1

REPORT INFORMATION
  Report Type: Spontaneous
  Country: FR (occurrence: FR)
  Receive Date: 20210316
  Receipt Date: 20210316
  Transmission Date: 20210420
  Serious: Yes (Hospitalization)
  Sender: FDA-Public Use
  Company Number: FR-TEVA-2021-FR-1889441

PATIENT
  Age: 38 Year
  Sex: Male
  Weight: 39 kg

DRUGS (13)
  1. CORTANCYL [Concomitant]
     Active Substance: PREDNISONE
     Route: 048
  2. CHOLURSO [Concomitant]
     Active Substance: URSODIOL
     Route: 048
  3. TAZOCILLINE [Suspect]
     Active Substance: PIPERACILLIN SODIUM\TAZOBACTAM SODIUM
     Indication: PYELONEPHRITIS
     Dosage: 12 G
     Route: 042
     Dates: start: 20201121, end: 20201206
  4. CALTRATE [Concomitant]
     Active Substance: CALCIUM CARBONATE
     Route: 048
  5. CASPOFUNGINE (ACETATE DE) ((CHAMPIGNON/GLAREA LOZOYENSIS)) [Suspect]
     Active Substance: CASPOFUNGIN ACETATE
     Indication: PYELONEPHRITIS
     Dosage: SEE COMMENT
     Route: 042
     Dates: start: 20201126, end: 20201204
  6. FLUCONAZOLE. [Suspect]
     Active Substance: FLUCONAZOLE
     Indication: PYELONEPHRITIS
     Dosage: 400MG / D FROM 24/11 TO 26/11 THEN FROM 4/12 , UNIT DOSE : 400 MG
     Route: 048
     Dates: start: 20201124
  7. CERTICAN [Suspect]
     Active Substance: EVEROLIMUS
     Indication: IMMUNOSUPPRESSION
     Dosage: 2 DF
     Route: 048
  8. NOVORAPID [Concomitant]
     Active Substance: INSULIN ASPART
     Route: 042
  9. KEPPRA [Concomitant]
     Active Substance: LEVETIRACETAM
     Route: 048
  10. ADVAGRAF [Suspect]
     Active Substance: TACROLIMUS
     Indication: IMMUNOSUPPRESSION
     Dosage: 2 MG
     Route: 048
  11. CIFLOX [Suspect]
     Active Substance: CIPROFLOXACIN
     Indication: PYELONEPHRITIS
     Dosage: NOT KNOWN
     Route: 048
     Dates: start: 20201121, end: 20201220
  12. ALFACALCIDOL [Concomitant]
     Active Substance: ALFACALCIDOL
     Route: 048
  13. BICARBONATE DE SODIUM [Concomitant]
     Active Substance: SODIUM BICARBONATE
     Route: 048

REACTIONS (2)
  - Transaminases increased [Recovering/Resolving]
  - Gamma-glutamyltransferase increased [Recovering/Resolving]

NARRATIVE: CASE EVENT DATE: 20201204
